FAERS Safety Report 22038140 (Version 1)
Quarter: 2023Q1

REPORT INFORMATION
  Report Type: Spontaneous
  Country: US (occurrence: US)
  Receive Date: 20230227
  Receipt Date: 20230227
  Transmission Date: 20230418
  Serious: No
  Sender: FDA-Public Use
  Company Number: US-IGSA-BIG0019209

PATIENT
  Sex: Female
  Weight: 68 kg

DRUGS (23)
  1. PROLASTIN-C LIQUID [Suspect]
     Active Substance: .ALPHA.1-PROTEINASE INHIBITOR HUMAN
     Indication: Alpha-1 antitrypsin deficiency
     Dosage: 4080 MILLIGRAM, Q.WK.
     Route: 042
     Dates: start: 20211015
  2. TRELEGY ELLIPTA [Concomitant]
     Active Substance: FLUTICASONE FUROATE\UMECLIDINIUM BROMIDE\VILANTEROL TRIFENATATE
  3. KLONOPIN [Concomitant]
     Active Substance: CLONAZEPAM
  4. LEXAPRO [Concomitant]
     Active Substance: ESCITALOPRAM OXALATE
  5. DILTIAZEM [Concomitant]
     Active Substance: DILTIAZEM
  6. ASPIRIN [Concomitant]
     Active Substance: ASPIRIN
  7. LEVALBUTEROL [Concomitant]
     Active Substance: LEVALBUTEROL
  8. ACETYLCYSTEINE [Concomitant]
     Active Substance: ACETYLCYSTEINE
  9. CYCLOBENZAPRINE [Concomitant]
     Active Substance: CYCLOBENZAPRINE
  10. ONDANSETRON [Concomitant]
     Active Substance: ONDANSETRON
  11. FAMOTIDINE [Concomitant]
     Active Substance: FAMOTIDINE
  12. ALBUTEROL SULFATE [Concomitant]
     Active Substance: ALBUTEROL SULFATE
  13. AZELASTINE [Concomitant]
     Active Substance: AZELASTINE
  14. FLECAINIDE [Concomitant]
     Active Substance: FLECAINIDE
  15. ARFORMOTEROL [Concomitant]
     Active Substance: ARFORMOTEROL
  16. HYDROXYZINE [Concomitant]
     Active Substance: HYDROXYZINE HYDROCHLORIDE
  17. METOPROLOL TARTRATE [Concomitant]
     Active Substance: METOPROLOL TARTRATE
  18. PANTOPRAZOLE [Concomitant]
     Active Substance: PANTOPRAZOLE
  19. DALIRESP [Concomitant]
     Active Substance: ROFLUMILAST
  20. DOXEPIN [Concomitant]
     Active Substance: DOXEPIN
  21. PREMARIN [Concomitant]
     Active Substance: ESTROGENS, CONJUGATED
  22. LOSARTAN [Concomitant]
     Active Substance: LOSARTAN
  23. TEMAZEPAM [Concomitant]
     Active Substance: TEMAZEPAM

REACTIONS (1)
  - Weight increased [Not Recovered/Not Resolved]
